FAERS Safety Report 14055066 (Version 1)
Quarter: 2017Q4

REPORT INFORMATION
  Report Type: Report from Study
  Country: DE (occurrence: DE)
  Receive Date: 20171006
  Receipt Date: 20171006
  Transmission Date: 20180321
  Serious: Yes (Death, Other)
  Sender: FDA-Public Use
  Company Number: DE-ROCHE-1920639

PATIENT

DRUGS (6)
  1. ALTEPLASE. [Suspect]
     Active Substance: ALTEPLASE
     Indication: ACUTE MYOCARDIAL INFARCTION
     Route: 042
  2. ASPIRIN. [Suspect]
     Active Substance: ASPIRIN
     Route: 042
  3. HEPARIN [Suspect]
     Active Substance: HEPARIN SODIUM
     Dosage: 15 UNITS PER KG PER HOUR (TO A MAXIMUM OF 1000 UNITS PER HOUR) WAS STARTED BEFORE OR CONCURRENTLY WI
     Route: 042
  4. ASPIRIN. [Suspect]
     Active Substance: ASPIRIN
     Indication: ACUTE MYOCARDIAL INFARCTION
     Route: 048
  5. LANOTEPLASE. [Suspect]
     Active Substance: LANOTEPLASE
     Indication: ACUTE MYOCARDIAL INFARCTION
     Route: 042
  6. HEPARIN [Suspect]
     Active Substance: HEPARIN SODIUM
     Indication: ACUTE MYOCARDIAL INFARCTION
     Route: 042

REACTIONS (3)
  - Cerebral haemorrhage [Fatal]
  - Haemorrhagic stroke [Unknown]
  - Haemorrhage intracranial [Fatal]
